FAERS Safety Report 6645575-7 (Version None)
Quarter: 2010Q1

REPORT INFORMATION
  Report Type: 
  Country: None (occurrence: None)
  Receive Date: 20100319
  Receipt Date: 20100319
  Transmission Date: 20100710
  Serious: Yes (Other)
  Sender: FDA-Public Use
  Company Number: None

PATIENT
  Sex: Female
  Weight: 43.5453 kg

DRUGS (2)
  1. VALTREX [Suspect]
     Indication: HERPES VIRUS INFECTION
     Dosage: 1 GM QD
  2. ACYCLOVIR [Concomitant]

REACTIONS (3)
  - HERPES VIRUS INFECTION [None]
  - INFLUENZA LIKE ILLNESS [None]
  - PRODUCT SUBSTITUTION ISSUE [None]
